FAERS Safety Report 9516394 (Version 2)
Quarter: 2013Q4

REPORT INFORMATION
  Report Type: Spontaneous
  Country: IT (occurrence: None)
  Receive Date: 20130909
  Receipt Date: 20131028
  Transmission Date: 20140711
  Serious: Yes (Hospitalization)
  Sender: FDA-Public Use
  Company Number: AUR-APL-2013-07467

PATIENT
  Age: 42 Year
  Sex: Male

DRUGS (4)
  1. CEFTRIAXONE (CEFTRIAXONE) [Suspect]
     Indication: PNEUMONITIS
     Route: 042
     Dates: start: 20130707, end: 20130710
  2. CEFTRIAXONE (CEFTRIAXONE) [Suspect]
     Route: 042
     Dates: start: 20130711, end: 20130718
  3. ZITROMAX [Suspect]
     Route: 042
     Dates: start: 20130711, end: 20130718
  4. PARACETAMOL B. BRAUN (PARACETAMOL) [Concomitant]

REACTIONS (3)
  - Hepatitis acute [None]
  - Pyrexia [None]
  - Hepatocellular injury [None]
